FAERS Safety Report 11313381 (Version 3)
Quarter: 2015Q4

REPORT INFORMATION
  Report Type: Report from Study
  Country: US (occurrence: US)
  Receive Date: 20150727
  Receipt Date: 20151117
  Transmission Date: 20160304
  Serious: No
  Sender: FDA-Public Use
  Company Number: PHEH2015US013518

PATIENT
  Sex: Male
  Weight: 86.17 kg

DRUGS (1)
  1. GILENYA [Suspect]
     Active Substance: FINGOLIMOD HYDROCHLORIDE
     Indication: MULTIPLE SCLEROSIS
     Dosage: 0.5 MG, QD
     Route: 048
     Dates: start: 20150520

REACTIONS (8)
  - Weight decreased [Unknown]
  - Chromaturia [Unknown]
  - Dehydration [Unknown]
  - Fatigue [Unknown]
  - Memory impairment [Not Recovered/Not Resolved]
  - Malaise [Unknown]
  - Back pain [Recovered/Resolved]
  - Headache [Unknown]
